FAERS Safety Report 24261179 (Version 1)
Quarter: 2024Q3

REPORT INFORMATION
  Report Type: Spontaneous
  Country: US (occurrence: US)
  Receive Date: 20240829
  Receipt Date: 20240829
  Transmission Date: 20241016
  Serious: Yes (Other)
  Sender: AMGEN
  Company Number: US-AMGEN-USASP2024167693

PATIENT
  Age: 65 Year
  Sex: Male

DRUGS (12)
  1. INFLIXIMAB [Suspect]
     Active Substance: INFLIXIMAB
     Indication: Multiple sclerosis
     Dosage: UNK
     Route: 065
  2. INFLIXIMAB [Suspect]
     Active Substance: INFLIXIMAB
     Indication: Neurosarcoidosis
  3. INFLIXIMAB [Suspect]
     Active Substance: INFLIXIMAB
     Indication: Chronic lymphocytic inflammation with pontine perivascular enhancement responsive to steroids
  4. OCRELIZUMAB [Concomitant]
     Active Substance: OCRELIZUMAB
     Indication: Multiple sclerosis
     Dosage: UNK
     Route: 065
  5. OCRELIZUMAB [Concomitant]
     Active Substance: OCRELIZUMAB
     Indication: Neurosarcoidosis
  6. OCRELIZUMAB [Concomitant]
     Active Substance: OCRELIZUMAB
     Indication: Chronic lymphocytic inflammation with pontine perivascular enhancement responsive to steroids
  7. CYCLOPHOSPHAMIDE [Concomitant]
     Active Substance: CYCLOPHOSPHAMIDE
     Indication: Multiple sclerosis
     Dosage: UNK
     Route: 065
  8. CYCLOPHOSPHAMIDE [Concomitant]
     Active Substance: CYCLOPHOSPHAMIDE
     Indication: Neurosarcoidosis
  9. CYCLOPHOSPHAMIDE [Concomitant]
     Active Substance: CYCLOPHOSPHAMIDE
     Indication: Chronic lymphocytic inflammation with pontine perivascular enhancement responsive to steroids
  10. CLADRIBINE [Concomitant]
     Active Substance: CLADRIBINE
     Indication: Multiple sclerosis
     Dosage: UNK
     Route: 065
  11. CLADRIBINE [Concomitant]
     Active Substance: CLADRIBINE
     Indication: Neurosarcoidosis
  12. CLADRIBINE [Concomitant]
     Active Substance: CLADRIBINE
     Indication: Chronic lymphocytic inflammation with pontine perivascular enhancement responsive to steroids

REACTIONS (3)
  - Erdheim-Chester disease [Recovering/Resolving]
  - Drug effective for unapproved indication [Unknown]
  - Off label use [Unknown]
